FAERS Safety Report 21094473 (Version 1)
Quarter: 2022Q3

REPORT INFORMATION
  Report Type: Spontaneous
  Country: US (occurrence: None)
  Receive Date: 20220716
  Receipt Date: 20220716
  Transmission Date: 20221027
  Serious: Yes (Hospitalization)
  Sender: FDA-Public Use
  Company Number: None

PATIENT
  Age: 68 Year
  Sex: Male
  Weight: 73.9 kg

DRUGS (1)
  1. CISPLATIN [Suspect]
     Active Substance: CISPLATIN
     Dates: end: 20220621

REACTIONS (5)
  - Diarrhoea [None]
  - Hypokalaemia [None]
  - Hypomagnesaemia [None]
  - Hypocalcaemia [None]
  - Refeeding syndrome [None]

NARRATIVE: CASE EVENT DATE: 20220624
